FAERS Safety Report 9207924 (Version 2)
Quarter: 2013Q4

REPORT INFORMATION
  Report Type: Spontaneous
  Country: US (occurrence: US)
  Receive Date: 20130403
  Receipt Date: 20131021
  Transmission Date: 20140711
  Serious: Yes (Hospitalization, Other)
  Sender: FDA-Public Use
  Company Number: US-BAYER-2013-040707

PATIENT
  Age: 22 Year
  Sex: Female
  Weight: 48.07 kg

DRUGS (9)
  1. YAZ [Suspect]
     Indication: PREMENSTRUAL DYSPHORIC DISORDER
     Dosage: UNK
     Dates: start: 2008, end: 2011
  2. YAZ [Suspect]
     Indication: PREMENSTRUAL SYNDROME
  3. YASMIN [Suspect]
     Indication: PREMENSTRUAL DYSPHORIC DISORDER
     Dosage: UNK
     Dates: start: 2008, end: 2011
  4. YASMIN [Suspect]
     Indication: PREMENSTRUAL SYNDROME
  5. KEPPRA [Concomitant]
     Indication: CONVULSION
     Dosage: 500 MG, BID
  6. HYDROCODONE W/ACETAMINOPHEN [Concomitant]
  7. ATIVAN [Concomitant]
  8. ZOFRAN [Concomitant]
  9. LORTAB [Concomitant]

REACTIONS (10)
  - Gallbladder enlargement [None]
  - Cholecystitis chronic [None]
  - Anxiety [None]
  - Emotional distress [None]
  - Pain [None]
  - Injury [None]
  - Psychological trauma [None]
  - Depression [None]
  - Insomnia [None]
  - Abdominal pain upper [None]
